FAERS Safety Report 18440863 (Version 1)
Quarter: 2020Q4

REPORT INFORMATION
  Report Type: Spontaneous
  Country: US (occurrence: US)
  Receive Date: 20201029
  Receipt Date: 20201029
  Transmission Date: 20210114
  Serious: Yes (Hospitalization)
  Sender: FDA-Public Use
  Company Number: NVSC2020US284768

PATIENT
  Age: 51 Year
  Sex: Male

DRUGS (5)
  1. METHYLPREDNISOLONE. [Suspect]
     Active Substance: METHYLPREDNISOLONE
     Indication: ANGIOEDEMA
     Dosage: 125 MG IV
     Route: 042
  2. LISINOPRIL. [Concomitant]
     Active Substance: LISINOPRIL
     Indication: PRODUCT USED FOR UNKNOWN INDICATION
     Dosage: 5 MG
     Route: 065
  3. DIPHENHYDRAMINE. [Suspect]
     Active Substance: DIPHENHYDRAMINE
     Indication: ANGIOEDEMA
     Dosage: 50 MG IV
     Route: 042
  4. FAMOTIDINE. [Suspect]
     Active Substance: FAMOTIDINE
     Indication: ANGIOEDEMA
     Dosage: 20 MG IV
     Route: 042
  5. EPINEPHRINE HYDROGENTARTRATE [Suspect]
     Active Substance: EPINEPHRINE BITARTRATE
     Indication: ANGIOEDEMA
     Dosage: 0.3 MG (1:1000) IM
     Route: 030

REACTIONS (2)
  - Angioedema [Recovered/Resolved]
  - Product use in unapproved indication [Unknown]
